FAERS Safety Report 14326374 (Version 1)
Quarter: 2017Q4

REPORT INFORMATION
  Report Type: Spontaneous
  Country: US (occurrence: US)
  Receive Date: 20171227
  Receipt Date: 20171227
  Transmission Date: 20180321
  Serious: Yes (Other)
  Sender: FDA-Public Use
  Company Number: US-ABBVIE-17K-163-2204679-00

PATIENT
  Sex: Male

DRUGS (2)
  1. HUMIRA [Suspect]
     Active Substance: ADALIMUMAB
     Indication: MATERNAL EXPOSURE TIMING UNSPECIFIED
     Route: 064
  2. HUMIRA [Suspect]
     Active Substance: ADALIMUMAB
     Route: 063

REACTIONS (7)
  - Procedural complication [Not Recovered/Not Resolved]
  - Retinopathy of prematurity [Recovered/Resolved]
  - Breech presentation [Unknown]
  - Exposure during breast feeding [Unknown]
  - Premature baby [Not Recovered/Not Resolved]
  - Foetal exposure during pregnancy [Unknown]
  - Inguinal hernia [Recovered/Resolved]

NARRATIVE: CASE EVENT DATE: 201705
